FAERS Safety Report 7154199-7 (Version None)
Quarter: 2010Q4

REPORT INFORMATION
  Report Type: 
  Country: None (occurrence: None)
  Receive Date: 20101213
  Receipt Date: 20101203
  Transmission Date: 20110411
  Serious: Yes (Other)
  Sender: FDA-Public Use
  Company Number: AR-PFIZER INC-2010166219

PATIENT
  Age: 55 Year
  Sex: Female

DRUGS (4)
  1. LYRICA [Suspect]
     Dosage: UNK
  2. TRILEPTAL [Suspect]
     Dosage: 300 MG, UNK
  3. TEGRETOL [Suspect]
     Dosage: 200 MG, UNK
  4. SIFROL [Suspect]
     Dosage: UNK

REACTIONS (5)
  - BLOOD PRESSURE INCREASED [None]
  - DIZZINESS [None]
  - ELECTROENCEPHALOGRAM ABNORMAL [None]
  - MALAISE [None]
  - NEUROLOGICAL DECOMPENSATION [None]
